FAERS Safety Report 10445813 (Version 1)
Quarter: 2014Q3

REPORT INFORMATION
  Report Type: Spontaneous
  Country: US (occurrence: US)
  Receive Date: 20140910
  Receipt Date: 20140910
  Transmission Date: 20150326
  Serious: Yes (Other)
  Sender: FDA-Public Use
  Company Number: US-PFIZER INC-2014251626

PATIENT
  Age: 52 Year
  Sex: Female
  Weight: 50.34 kg

DRUGS (2)
  1. CHANTIX [Suspect]
     Active Substance: VARENICLINE TARTRATE
     Dosage: UNK
  2. NICORETTE [Suspect]
     Active Substance: NICOTINE
     Dosage: UNK

REACTIONS (4)
  - Drug intolerance [Unknown]
  - Product taste abnormal [Unknown]
  - Drug dependence [Unknown]
  - Nausea [Unknown]
